FAERS Safety Report 18603111 (Version 1)
Quarter: 2020Q4

REPORT INFORMATION
  Report Type: Spontaneous
  Country: US (occurrence: US)
  Receive Date: 20201210
  Receipt Date: 20201210
  Transmission Date: 20210114
  Serious: No
  Sender: FDA-Public Use
  Company Number: US-BEH-2020125778

PATIENT
  Sex: Female

DRUGS (7)
  1. VITAMINS NOS [Concomitant]
     Active Substance: VITAMINS
  2. HIZENTRA [Suspect]
     Active Substance: HUMAN IMMUNOGLOBULIN G
     Indication: HYPOGAMMAGLOBULINAEMIA
     Dosage: 20 GRAM, QOW
     Route: 058
  3. LOSARTAN POTASSIUM. [Concomitant]
     Active Substance: LOSARTAN POTASSIUM
  4. PREDNISONE. [Concomitant]
     Active Substance: PREDNISONE
  5. LISINOPRIL. [Concomitant]
     Active Substance: LISINOPRIL
  6. CELLCEPT [Concomitant]
     Active Substance: MYCOPHENOLATE MOFETIL\MYCOPHENOLATE MOFETIL HYDROCHLORIDE
  7. FISH OIL [Concomitant]
     Active Substance: FISH OIL

REACTIONS (1)
  - Fatigue [Recovered/Resolved]
